FAERS Safety Report 25261285 (Version 1)
Quarter: 2025Q2

REPORT INFORMATION
  Report Type: Spontaneous
  Country: US (occurrence: US)
  Receive Date: 20250501
  Receipt Date: 20250501
  Transmission Date: 20250717
  Serious: No
  Sender: AMGEN
  Company Number: US-AMGEN-USASP2025085886

PATIENT
  Age: 52 Year
  Sex: Male

DRUGS (4)
  1. TEPEZZA [Suspect]
     Active Substance: TEPROTUMUMAB-TRBW
     Indication: Endocrine ophthalmopathy
     Route: 065
  2. TEPEZZA [Suspect]
     Active Substance: TEPROTUMUMAB-TRBW
     Route: 065
  3. TEPEZZA [Suspect]
     Active Substance: TEPROTUMUMAB-TRBW
     Route: 065
  4. TEPEZZA [Suspect]
     Active Substance: TEPROTUMUMAB-TRBW
     Route: 065
     Dates: start: 202502, end: 202502

REACTIONS (1)
  - Hypoacusis [Not Recovered/Not Resolved]
